FAERS Safety Report 9845870 (Version 1)
Quarter: 2014Q1

REPORT INFORMATION
  Report Type: Spontaneous
  Country: US (occurrence: US)
  Receive Date: 20140127
  Receipt Date: 20140127
  Transmission Date: 20141002
  Serious: No
  Sender: FDA-Public Use
  Company Number: US-PFIZER INC-2014023254

PATIENT
  Age: 82 Year
  Sex: Male
  Weight: 80.73 kg

DRUGS (5)
  1. LYRICA [Suspect]
     Indication: DIABETIC NEUROPATHY
     Dosage: 75 MG, 3X/DAY
     Route: 048
     Dates: start: 20131201
  2. LYRICA [Suspect]
     Indication: HYPOAESTHESIA
  3. COUMADIN [Concomitant]
     Indication: BLOOD DISORDER
     Dosage: 3 MG, DAILY (FOR FIRST 5 DAYS)
  4. COUMADIN [Concomitant]
     Dosage: UNK, (ONE AND HALF TABLET THE NEXT TWO DAYS)
  5. PLAVIX [Concomitant]
     Dosage: UNK

REACTIONS (1)
  - Rash [Recovered/Resolved]
